FAERS Safety Report 11700914 (Version 2)
Quarter: 2015Q4

REPORT INFORMATION
  Report Type: Spontaneous
  Country: PH (occurrence: PH)
  Receive Date: 20151105
  Receipt Date: 20151217
  Transmission Date: 20160304
  Serious: Yes (Hospitalization)
  Sender: FDA-Public Use
  Company Number: PH-ASTRAZENECA-2015SF04908

PATIENT
  Age: 45 Year
  Sex: Female

DRUGS (6)
  1. CO-AMOXICLAV [Concomitant]
     Active Substance: AMOXICILLIN\CLAVULANIC ACID
     Indication: ANTIBIOTIC THERAPY
     Route: 048
     Dates: start: 20151028
  2. SENSORCAINE [Concomitant]
     Active Substance: BUPIVACAINE HYDROCHLORIDE
     Indication: ANAESTHESIA
     Route: 037
     Dates: start: 20151027, end: 20151027
  3. CO-AMOXICLAV [Concomitant]
     Active Substance: AMOXICILLIN\CLAVULANIC ACID
     Indication: ANTIBIOTIC THERAPY
     Route: 042
     Dates: start: 20151027, end: 20151028
  4. NEXIUM [Suspect]
     Active Substance: ESOMEPRAZOLE MAGNESIUM
     Indication: ANTACID THERAPY
     Route: 048
     Dates: start: 20151026, end: 20151027
  5. DYNASTAT [Concomitant]
     Active Substance: PARECOXIB SODIUM
     Indication: PAIN
     Dosage: EVERY 12 HOURS
     Route: 042
     Dates: start: 20151027, end: 20151027
  6. MORPHINE [Concomitant]
     Active Substance: MORPHINE
     Indication: ANAESTHESIA
     Route: 037
     Dates: start: 20151027, end: 20151027

REACTIONS (1)
  - Chromaturia [Recovered/Resolved]

NARRATIVE: CASE EVENT DATE: 20151027
